FAERS Safety Report 14822068 (Version 5)
Quarter: 2018Q2

REPORT INFORMATION
  Report Type: Spontaneous
  Country: US (occurrence: US)
  Receive Date: 20180427
  Receipt Date: 20180620
  Transmission Date: 20180711
  Serious: Yes (Death, Life-Threatening, Hospitalization)
  Sender: FDA-Public Use
  Company Number: US-CELGENEUS-USA-20180408161

PATIENT
  Age: 16 Year
  Sex: Male
  Weight: 58.6 kg

DRUGS (86)
  1. VENETOCLAX. [Suspect]
     Active Substance: VENETOCLAX
     Dosage: 800 MILLIGRAM
     Route: 065
     Dates: start: 20180211, end: 20180215
  2. SODIUM CHLORIDE. [Concomitant]
     Active Substance: SODIUM CHLORIDE
     Dosage: 7.5 MILLIGRAM
     Route: 041
     Dates: start: 20180217, end: 20180217
  3. PHYTONADION [Concomitant]
     Active Substance: PHYTONADIONE
     Indication: PRODUCT USED FOR UNKNOWN INDICATION
     Route: 065
  4. CEFEPIME HYDROCHLORIDE. [Concomitant]
     Active Substance: CEFEPIME HYDROCHLORIDE
     Indication: ANTIBIOTIC PROPHYLAXIS
     Dosage: 2000 MILLIGRAM
     Route: 041
     Dates: start: 20180209, end: 20180218
  5. CLONIDINE HYDROCHLORIDE. [Concomitant]
     Active Substance: CLONIDINE HYDROCHLORIDE
     Indication: HYPERTENSION
     Dosage: .2 MILLIGRAM
     Route: 048
     Dates: start: 20180208, end: 20180223
  6. DRONABINOL. [Concomitant]
     Active Substance: DRONABINOL
     Indication: NAUSEA
     Dosage: 7.5 MILLIGRAM
     Route: 048
     Dates: start: 20180210, end: 20180211
  7. DRONABINOL. [Concomitant]
     Active Substance: DRONABINOL
     Dosage: 15 MILLIGRAM
     Route: 048
     Dates: start: 20180211, end: 20180305
  8. SULFAMETHOXAZOLE AND TRIMETHOPRIM [Concomitant]
     Active Substance: SULFAMETHOXAZOLE\TRIMETHOPRIM
     Indication: INFECTION PROPHYLAXIS
     Dosage: 160 MILLIGRAM
     Route: 048
     Dates: start: 20180211, end: 20180305
  9. OSMOTAN [Concomitant]
     Active Substance: DEXTROSE\POTASSIUM CHLORIDE\SODIUM CHLORIDE
     Indication: FLUID REPLACEMENT
     Dosage: 1000 MILLILITER
     Route: 041
     Dates: start: 20180213, end: 20180302
  10. KETAMINE HYDROCHLORIDE. [Concomitant]
     Active Substance: KETAMINE HYDROCHLORIDE
     Indication: FLUID REPLACEMENT
     Dosage: 250 MILLIGRAM
     Route: 041
     Dates: start: 20180224
  11. VIDAZA [Suspect]
     Active Substance: AZACITIDINE
     Indication: ACUTE MYELOID LEUKAEMIA
     Dosage: 75 MILLIGRAM/SQ. METER
     Route: 041
     Dates: start: 20180217, end: 20180223
  12. SODIUM CHLORIDE. [Concomitant]
     Active Substance: SODIUM CHLORIDE
     Dosage: 7.5 MILLIGRAM
     Route: 041
     Dates: start: 20180304, end: 20180304
  13. CALCIUM GLUCONATE. [Concomitant]
     Active Substance: CALCIUM GLUCONATE
     Indication: PRODUCT USED FOR UNKNOWN INDICATION
     Route: 065
  14. LORAZEPAM. [Concomitant]
     Active Substance: LORAZEPAM
     Indication: ANXIETY
     Dosage: 2 MILLIGRAM
     Route: 041
     Dates: start: 20180209
  15. METHADONE HYDROCHLORIDE. [Concomitant]
     Active Substance: METHADONE HYDROCHLORIDE
     Indication: BONE PAIN
     Dosage: 5 MILLIGRAM
     Route: 041
     Dates: start: 20180216, end: 20180216
  16. FENTANYL. [Concomitant]
     Active Substance: FENTANYL
     Indication: NEURALGIA
  17. HYOSCINE HYDROBROMIDE [Concomitant]
     Active Substance: SCOPOLAMINE
     Indication: NAUSEA
     Dosage: 1.5 MILLIGRAM
     Route: 062
     Dates: start: 20180210, end: 20180305
  18. CLONAZEPAM. [Concomitant]
     Active Substance: CLONAZEPAM
     Indication: ANXIETY
     Dosage: .5 MILLIGRAM
     Route: 065
     Dates: start: 20180212, end: 20180222
  19. SODIUM BICARBONATE. [Concomitant]
     Active Substance: SODIUM BICARBONATE
     Indication: ACIDOSIS
     Dosage: 325 MILLIGRAM
     Route: 048
     Dates: start: 20180213, end: 20180213
  20. PREGABALIN. [Concomitant]
     Active Substance: PREGABALIN
     Indication: ARTHRALGIA
  21. ALLOPURINOL. [Concomitant]
     Active Substance: ALLOPURINOL
     Indication: BLOOD URIC ACID
     Dosage: 100 MILLIGRAM
     Route: 048
     Dates: start: 20180216, end: 20180217
  22. SODIUM CHLORIDE. [Concomitant]
     Active Substance: SODIUM CHLORIDE
     Dosage: 7.5 MILLIGRAM
     Route: 041
     Dates: start: 20180224, end: 20180224
  23. GLUCOSE [Concomitant]
     Active Substance: DEXTROSE
     Indication: FLUID REPLACEMENT
     Route: 041
     Dates: start: 20180208, end: 20180305
  24. METHADONE HYDROCHLORIDE. [Concomitant]
     Active Substance: METHADONE HYDROCHLORIDE
     Indication: ABDOMINAL PAIN
     Dosage: 3 MILLIGRAM
     Route: 041
     Dates: start: 20180215, end: 20180215
  25. METHADONE HYDROCHLORIDE. [Concomitant]
     Active Substance: METHADONE HYDROCHLORIDE
     Dosage: 57 MILLIGRAM
     Route: 065
     Dates: start: 20180223, end: 20180226
  26. METHADONE HYDROCHLORIDE. [Concomitant]
     Active Substance: METHADONE HYDROCHLORIDE
     Dosage: 81 MILLIGRAM
     Route: 065
     Dates: start: 20180302
  27. SIMETHICONE (DIMETHICONE) [Concomitant]
     Active Substance: DIMETHICONE
     Indication: ARTHRALGIA
  28. SIMETHICONE (DIMETHICONE) [Concomitant]
     Active Substance: DIMETHICONE
     Indication: BONE PAIN
  29. FENTANYL. [Concomitant]
     Active Substance: FENTANYL
     Indication: BONE PAIN
  30. PANCRELIPASE. [Concomitant]
     Active Substance: PANCRELIPASE
     Indication: MALABSORPTION
     Route: 048
     Dates: start: 20180213, end: 20180213
  31. RASBURICASE [Concomitant]
     Active Substance: RASBURICASE
     Dosage: 7.5 MILLIGRAM
     Route: 041
     Dates: start: 20180222, end: 20180222
  32. RASBURICASE [Concomitant]
     Active Substance: RASBURICASE
     Dosage: 7.5 MILLIGRAM
     Route: 041
     Dates: start: 20180304, end: 20180304
  33. VANCOMYCIN HYDROCHLORIDE. [Concomitant]
     Active Substance: VANCOMYCIN HYDROCHLORIDE
     Dosage: 800 MILLIGRAM
     Route: 041
     Dates: start: 20180222, end: 20180224
  34. ONDANSETRON HYDROCHLORIDE. [Concomitant]
     Active Substance: ONDANSETRON HYDROCHLORIDE
     Indication: NAUSEA
     Dosage: 24 MILLIGRAM
     Route: 041
     Dates: start: 20180208
  35. VENETOCLAX. [Suspect]
     Active Substance: VENETOCLAX
     Indication: ACUTE MYELOID LEUKAEMIA
     Dosage: 400 MILLIGRAM
     Route: 065
     Dates: start: 20180210, end: 20180210
  36. FUROSEMIDE SODIUM [Concomitant]
     Active Substance: FUROSEMIDE SODIUM
     Indication: OEDEMA
     Dosage: 40 MILLIGRAM
     Route: 041
     Dates: start: 20180218, end: 20180305
  37. MELATONIN [Concomitant]
     Active Substance: MELATONIN
     Indication: MIDDLE INSOMNIA
     Dosage: 6 MILLIGRAM
     Route: 048
     Dates: start: 20180209, end: 20180228
  38. SIMETHICONE (DIMETHICONE) [Concomitant]
     Active Substance: DIMETHICONE
     Indication: ABDOMINAL PAIN
     Dosage: 160 MILLIGRAM
     Route: 048
     Dates: start: 20180209, end: 20180305
  39. ALBUMIN HUMAN [Concomitant]
     Active Substance: ALBUMIN HUMAN
     Indication: FLUID REPLACEMENT
     Dosage: 100 MILLILITER
     Route: 041
     Dates: start: 20180217, end: 20180217
  40. PREGABALIN. [Concomitant]
     Active Substance: PREGABALIN
     Indication: BONE PAIN
     Dosage: 400 MILLIGRAM
     Route: 048
     Dates: start: 20180209, end: 20180305
  41. TROPICAMIDE. [Concomitant]
     Active Substance: TROPICAMIDE
     Indication: INFECTION PROPHYLAXIS
     Route: 065
     Dates: start: 20180222, end: 20180222
  42. VIDAZA [Suspect]
     Active Substance: AZACITIDINE
     Indication: REFRACTORY CANCER
     Route: 065
     Dates: start: 20171228, end: 20180206
  43. CALCIUM CARBONATE. [Concomitant]
     Active Substance: CALCIUM CARBONATE
     Indication: SUPPLEMENTATION THERAPY
     Route: 065
     Dates: start: 20180205
  44. METHADONE HYDROCHLORIDE. [Concomitant]
     Active Substance: METHADONE HYDROCHLORIDE
     Indication: ARTHRALGIA
     Dosage: 51 MILLIGRAM
     Route: 041
     Dates: start: 20180209, end: 20180223
  45. FENTANYL. [Concomitant]
     Active Substance: FENTANYL
     Indication: ABDOMINAL PAIN
     Dosage: 50-100MCG
     Route: 041
     Dates: start: 20180216
  46. PARACETAMOL [Concomitant]
     Active Substance: ACETAMINOPHEN
     Indication: ARTHRALGIA
  47. PARACETAMOL [Concomitant]
     Active Substance: ACETAMINOPHEN
     Indication: NEURALGIA
  48. PANTOPRAZOLE SODIUM SESQUIHYDRATE [Concomitant]
     Active Substance: PANTOPRAZOLE SODIUM
     Indication: NAUSEA
     Dosage: 20 MILLIGRAM
     Route: 041
     Dates: start: 20180212, end: 20180305
  49. RASBURICASE [Concomitant]
     Active Substance: RASBURICASE
     Indication: BLOOD URIC ACID ABNORMAL
     Dosage: 7.5 MILLIGRAM
     Route: 041
     Dates: start: 20180207, end: 20180207
  50. ALBUMIN HUMAN [Concomitant]
     Active Substance: ALBUMIN HUMAN
     Dosage: 50 MILLILITER
     Route: 041
     Dates: start: 20180228, end: 20180305
  51. MEXILETINE HYDROCHLORIDE. [Concomitant]
     Active Substance: MEXILETINE HYDROCHLORIDE
     Indication: HEART RATE IRREGULAR
     Dosage: 450 MILLIGRAM
     Route: 048
     Dates: start: 20180209, end: 20180305
  52. VANCOMYCIN HYDROCHLORIDE. [Concomitant]
     Active Substance: VANCOMYCIN HYDROCHLORIDE
     Indication: INFECTION PROPHYLAXIS
     Dosage: 810 MILLIGRAM
     Route: 041
     Dates: start: 20180216, end: 20180218
  53. VANCOMYCIN HYDROCHLORIDE. [Concomitant]
     Active Substance: VANCOMYCIN HYDROCHLORIDE
     Dosage: 750 MILLIGRAM
     Route: 041
     Dates: start: 20180228, end: 20180303
  54. VENETOCLAX. [Suspect]
     Active Substance: VENETOCLAX
     Indication: REFRACTORY CANCER
     Dosage: 200 MILLIGRAM
     Route: 065
     Dates: start: 20180208, end: 20180209
  55. VENETOCLAX. [Suspect]
     Active Substance: VENETOCLAX
     Dosage: 400 MILLIGRAM
     Route: 065
     Dates: start: 20180210, end: 20180304
  56. SODIUM CHLORIDE. [Concomitant]
     Active Substance: SODIUM CHLORIDE
     Indication: PROPHYLAXIS
     Dosage: 7.5 MILLIGRAM
     Route: 041
     Dates: start: 20180207, end: 20180207
  57. CLONIDINE HYDROCHLORIDE. [Concomitant]
     Active Substance: CLONIDINE HYDROCHLORIDE
     Indication: PAIN
  58. SIMETHICONE (DIMETHICONE) [Concomitant]
     Active Substance: DIMETHICONE
     Indication: NEURALGIA
  59. DOCUSATE [Concomitant]
     Active Substance: DOCUSATE
     Indication: CONSTIPATION
     Dosage: 100 MILLIGRAM
     Route: 048
     Dates: start: 20180210, end: 20180305
  60. MEROPENEM TRIHYDRATE [Concomitant]
     Active Substance: MEROPENEM
     Indication: INFECTION PROPHYLAXIS
     Dosage: 1000 MILLIGRAM
     Route: 041
     Dates: start: 20180218
  61. OLANZAPINE. [Concomitant]
     Active Substance: OLANZAPINE
     Indication: DELIRIUM
     Dosage: 5 MILLIGRAM
     Route: 048
     Dates: start: 20180223, end: 20180305
  62. OLANZAPINE. [Concomitant]
     Active Substance: OLANZAPINE
     Dosage: 10 MILLIGRAM
     Route: 048
     Dates: start: 20180305, end: 20180306
  63. HYPROMELLOSE [Concomitant]
     Active Substance: HYPROMELLOSES
     Indication: EYE LUBRICATION THERAPY
     Route: 065
     Dates: start: 20180209
  64. AMPHOTERCIN B [Concomitant]
     Indication: FUNGAL INFECTION
     Route: 065
     Dates: start: 20171206
  65. POTASSIUM CHLORIDE. [Concomitant]
     Active Substance: POTASSIUM CHLORIDE
     Indication: SUPPLEMENTATION THERAPY
     Route: 065
     Dates: start: 20171206
  66. SODIUM CHLORIDE. [Concomitant]
     Active Substance: SODIUM CHLORIDE
     Indication: NASAL CONGESTION
     Route: 045
     Dates: start: 20180211, end: 20180305
  67. SODIUM CHLORIDE. [Concomitant]
     Active Substance: SODIUM CHLORIDE
     Dosage: 7.5 MILLIGRAM
     Route: 041
     Dates: start: 20180222, end: 20180222
  68. CELECOXIB. [Concomitant]
     Active Substance: CELECOXIB
     Indication: ABDOMINAL PAIN
     Dosage: 100 MILLIGRAM
     Route: 048
     Dates: start: 20180209, end: 20180305
  69. CELECOXIB. [Concomitant]
     Active Substance: CELECOXIB
     Indication: ARTHRALGIA
  70. CELECOXIB. [Concomitant]
     Active Substance: CELECOXIB
     Indication: NEURALGIA
  71. CLONIDINE HYDROCHLORIDE. [Concomitant]
     Active Substance: CLONIDINE HYDROCHLORIDE
     Indication: SEDATIVE THERAPY
     Dosage: .2 MILLIGRAM
     Route: 048
     Dates: start: 20180208, end: 20180227
  72. ERGOCALCIFEROL. [Concomitant]
     Active Substance: ERGOCALCIFEROL
     Indication: VITAMIN SUPPLEMENTATION
     Dosage: 1000 UNITS
     Route: 048
     Dates: start: 20180209, end: 20180302
  73. METHADONE HYDROCHLORIDE. [Concomitant]
     Active Substance: METHADONE HYDROCHLORIDE
     Indication: NEURALGIA
     Dosage: 66 MILLIGRAM
     Route: 041
     Dates: start: 20180216, end: 20180218
  74. METHADONE HYDROCHLORIDE. [Concomitant]
     Active Substance: METHADONE HYDROCHLORIDE
     Dosage: 66 MILLIGRAM
     Route: 065
     Dates: start: 20180226, end: 20180301
  75. PARACETAMOL [Concomitant]
     Active Substance: ACETAMINOPHEN
     Indication: ABDOMINAL PAIN
     Dosage: 650 MILLIGRAM
     Route: 041
     Dates: start: 20180301
  76. RASBURICASE [Concomitant]
     Active Substance: RASBURICASE
     Indication: PROPHYLAXIS
     Dosage: 7.5 MILLIGRAM
     Route: 041
     Dates: start: 20180217, end: 20180217
  77. VANCOMYCIN HYDROCHLORIDE. [Concomitant]
     Active Substance: VANCOMYCIN HYDROCHLORIDE
     Dosage: 900 MILLIGRAM
     Route: 041
     Dates: start: 20180224, end: 20180228
  78. SEVELAMER CARBONATE. [Concomitant]
     Active Substance: SEVELAMER CARBONATE
     Indication: BLOOD PHOSPHORUS DECREASED
     Dosage: 2400 MILLIGRAM
     Route: 048
     Dates: start: 20180218, end: 20180305
  79. HYPROMELLOSE [Concomitant]
     Active Substance: HYPROMELLOSES
     Indication: INFECTION PROPHYLAXIS
  80. CELECOXIB. [Concomitant]
     Active Substance: CELECOXIB
     Indication: BONE PAIN
  81. FUROSEMIDE SODIUM [Concomitant]
     Active Substance: FUROSEMIDE SODIUM
     Indication: FLUID RETENTION
     Dosage: 20 MILLIGRAM
     Route: 041
     Dates: start: 20180208, end: 20180306
  82. MAGNESIUM SULFATE. [Concomitant]
     Active Substance: MAGNESIUM SULFATE
     Indication: CONSTIPATION
     Dosage: 7.5 MILLIGRAM
     Route: 048
     Dates: start: 20180209, end: 20180221
  83. FENTANYL. [Concomitant]
     Active Substance: FENTANYL
     Indication: ARTHRALGIA
  84. PARACETAMOL [Concomitant]
     Active Substance: ACETAMINOPHEN
     Indication: BONE PAIN
  85. RASBURICASE [Concomitant]
     Active Substance: RASBURICASE
     Dosage: 7.5 MILLIGRAM
     Route: 041
     Dates: start: 20180224, end: 20180224
  86. ALBUMIN HUMAN [Concomitant]
     Active Substance: ALBUMIN HUMAN
     Dosage: 500 MILLILITER
     Route: 041
     Dates: start: 20170303, end: 20180303

REACTIONS (3)
  - Hypokalaemia [Recovered/Resolved]
  - Respiratory failure [Fatal]
  - Hypocalcaemia [Recovered/Resolved]

NARRATIVE: CASE EVENT DATE: 20180209
